FAERS Safety Report 8125377-5 (Version None)
Quarter: 2012Q1

REPORT INFORMATION
  Report Type: 
  Country: None (occurrence: None)
  Receive Date: 20120209
  Receipt Date: 20120206
  Transmission Date: 20120608
  Serious: Yes (Hospitalization, Other)
  Sender: FDA-Public Use
  Company Number: PH-GLAXOSMITHKLINE-B0779915A

PATIENT
  Age: 77 Year
  Sex: Female

DRUGS (3)
  1. LYRICA [Suspect]
     Indication: PAIN
     Route: 065
  2. VALACYCLOVIR [Suspect]
     Indication: HERPES ZOSTER
     Dosage: 500MG TWICE PER DAY
     Dates: start: 20120121, end: 20120126
  3. CELEBREX [Suspect]
     Indication: PAIN
     Route: 065

REACTIONS (6)
  - HALLUCINATION, VISUAL [None]
  - DIARRHOEA [None]
  - ARRHYTHMIA [None]
  - CONFUSIONAL STATE [None]
  - CARDIAC FAILURE CONGESTIVE [None]
  - RENAL FAILURE ACUTE [None]
